FAERS Safety Report 4443455-9 (Version None)
Quarter: 2004Q3

REPORT INFORMATION
  Report Type: 
  Country: None (occurrence: None)
  Receive Date: 20040908
  Receipt Date: 20040127
  Transmission Date: 20050211
  Serious: Yes (Other)
  Sender: FDA-Public Use
  Company Number: US-GLAXOSMITHKLINE-A0496015A

PATIENT
  Age: 2 Year
  Sex: Female

DRUGS (2)
  1. LAMICTAL [Suspect]
     Indication: PARTIAL SEIZURES
     Dosage: 2.5MG TWICE PER DAY
     Route: 048
  2. TEGRETOL [Concomitant]
     Dosage: 350MG PER DAY

REACTIONS (2)
  - CONVULSION [None]
  - RASH [None]
